FAERS Safety Report 20657644 (Version 1)
Quarter: 2022Q1

REPORT INFORMATION
  Report Type: Spontaneous
  Country: IN (occurrence: IN)
  Receive Date: 20220331
  Receipt Date: 20220331
  Transmission Date: 20220424
  Serious: Yes (Other)
  Sender: FDA-Public Use
  Company Number: IN-HETERO-HET2022IN00741

PATIENT
  Age: 58 Year
  Sex: Male

DRUGS (6)
  1. OLANZAPINE [Suspect]
     Active Substance: OLANZAPINE
     Indication: Psychotic disorder
     Dosage: UNK
     Route: 065
  2. ESCITALOPRAM [Suspect]
     Active Substance: ESCITALOPRAM OXALATE
     Indication: Product used for unknown indication
     Dosage: UNK
     Route: 065
  3. CLONAZEPAM [Suspect]
     Active Substance: CLONAZEPAM
     Indication: Product used for unknown indication
     Dosage: UNK
     Route: 065
  4. AMITRIPTYLINE [Suspect]
     Active Substance: AMITRIPTYLINE
     Indication: Product used for unknown indication
     Dosage: UNK
     Route: 065
  5. AMANTADINE [Concomitant]
     Active Substance: AMANTADINE
     Indication: Tremor
     Dosage: UNK
     Route: 065
  6. RASAGILINE [Concomitant]
     Active Substance: RASAGILINE
     Indication: Tremor
     Dosage: UNK
     Route: 065

REACTIONS (1)
  - Serotonin syndrome [Recovering/Resolving]
